FAERS Safety Report 12395330 (Version 1)
Quarter: 2016Q2

REPORT INFORMATION
  Report Type: Spontaneous
  Country: GB (occurrence: GB)
  Receive Date: 20160523
  Receipt Date: 20160523
  Transmission Date: 20160815
  Serious: Yes (Other)
  Sender: FDA-Public Use
  Company Number: GB-PFIZER INC-2016135559

PATIENT
  Sex: Female

DRUGS (2)
  1. SIMPONI [Suspect]
     Active Substance: GOLIMUMAB
     Dosage: 50 MG, MONTHLY
     Route: 058
  2. METHOTREXATE SODIUM. [Suspect]
     Active Substance: METHOTREXATE SODIUM
     Dosage: DOSAGE FORM: UNSPECIFIED
     Route: 065

REACTIONS (6)
  - White blood cell count decreased [Recovering/Resolving]
  - Drug dose omission [Unknown]
  - Liver function test abnormal [Recovering/Resolving]
  - Device malfunction [Unknown]
  - Brain neoplasm [Unknown]
  - Spinal pain [Unknown]

NARRATIVE: CASE EVENT DATE: 2010
